FAERS Safety Report 21674495 (Version 2)
Quarter: 2023Q1

REPORT INFORMATION
  Report Type: Spontaneous
  Country: US (occurrence: US)
  Receive Date: 20221202
  Receipt Date: 20230124
  Transmission Date: 20230418
  Serious: No
  Sender: FDA-Public Use
  Company Number: US-PFIZER INC-PV202200116003

PATIENT
  Age: 50 Year
  Sex: Male

DRUGS (1)
  1. INLYTA [Suspect]
     Active Substance: AXITINIB
     Dosage: UNK

REACTIONS (10)
  - Product dose omission issue [Unknown]
  - Epistaxis [Unknown]
  - Cough [Unknown]
  - Dysphonia [Unknown]
  - Pain in extremity [Unknown]
  - Blister [Unknown]
  - Fatigue [Unknown]
  - Back pain [Unknown]
  - Pain in extremity [Unknown]
  - Haemoptysis [Unknown]
